FAERS Safety Report 17153494 (Version 1)
Quarter: 2019Q4

REPORT INFORMATION
  Report Type: Other
  Country: CA (occurrence: CA)
  Receive Date: 20191213
  Receipt Date: 20191213
  Transmission Date: 20200122
  Serious: Yes (Other)
  Sender: FDA-Public Use
  Company Number: CA-PFIZER INC-2019534274

PATIENT

DRUGS (6)
  1. ISOFLURANE. [Suspect]
     Active Substance: ISOFLURANE
     Indication: ANAESTHESIA
     Dosage: UNK
     Route: 065
  2. PROPOFOL. [Suspect]
     Active Substance: PROPOFOL
     Indication: ANAESTHESIA
     Dosage: 0.5 MG/KG, UNK
     Route: 065
  3. ENFLURANE. [Suspect]
     Active Substance: ENFLURANE
     Indication: ANAESTHESIA
     Dosage: UNK
     Route: 065
  4. REMIFENTANIL [Suspect]
     Active Substance: REMIFENTANIL
     Indication: ANAESTHESIA
     Dosage: UNK
     Route: 065
  5. REMIFENTANIL [Suspect]
     Active Substance: REMIFENTANIL
     Dosage: 0.5 MG/KG, UNK
     Route: 065
  6. REMIFENTANIL [Suspect]
     Active Substance: REMIFENTANIL
     Dosage: 0.25 MG/KG, UNK
     Route: 065

REACTIONS (1)
  - Epilepsy [Unknown]
